FAERS Safety Report 6089085-7 (Version None)
Quarter: 2009Q1

REPORT INFORMATION
  Report Type: 
  Country: None (occurrence: None)
  Receive Date: 20090224
  Receipt Date: 20090219
  Transmission Date: 20090719
  Serious: No
  Sender: FDA-Public Use
  Company Number: US-JNJFOC-20090205381

PATIENT
  Sex: Female
  Weight: 141.52 kg

DRUGS (2)
  1. DURAGESIC-100 [Suspect]
     Indication: BACK PAIN
     Route: 062
  2. PERCOCET [Concomitant]
     Indication: BACK PAIN
     Route: 048

REACTIONS (5)
  - DRUG DOSE OMISSION [None]
  - MALAISE [None]
  - NAUSEA [None]
  - PAIN [None]
  - VOMITING [None]
